FAERS Safety Report 7227952-9 (Version None)
Quarter: 2011Q1

REPORT INFORMATION
  Report Type: 
  Country: None (occurrence: None)
  Receive Date: 20110111
  Receipt Date: 20110111
  Transmission Date: 20110831
  Serious: Yes (Other)
  Sender: FDA-Public Use
  Company Number: None

PATIENT
  Age: 64 Year
  Sex: Male
  Weight: 91.173 kg

DRUGS (3)
  1. OXYCONTIN [Suspect]
     Indication: POST PROCEDURAL COMPLICATION
     Dosage: 60 TABLETS TWICE A DAY
  2. OXYCONTIN [Suspect]
     Indication: NEUROPATHY PERIPHERAL
     Dosage: 60 TABLETS TWICE A DAY
  3. OXYCONTIN [Suspect]
     Indication: BACK INJURY
     Dosage: 60 TABLETS TWICE A DAY

REACTIONS (10)
  - NAUSEA [None]
  - VOMITING [None]
  - PRODUCT FORMULATION ISSUE [None]
  - DIARRHOEA [None]
  - URINARY TRACT INFECTION [None]
  - DRUG HYPERSENSITIVITY [None]
  - MUSCLE SPASMS [None]
  - CYSTITIS [None]
  - ABDOMINAL PAIN UPPER [None]
  - RASH [None]
